FAERS Safety Report 22169711 (Version 1)
Quarter: 2023Q2

REPORT INFORMATION
  Report Type: Report from Study
  Country: US (occurrence: US)
  Receive Date: 20230404
  Receipt Date: 20230404
  Transmission Date: 20230721
  Serious: Yes (Other)
  Sender: FDA-Public Use
  Company Number: US-BEH-2022153525

PATIENT
  Age: 61 Year
  Sex: Female

DRUGS (6)
  1. PRIVIGEN [Suspect]
     Active Substance: HUMAN IMMUNOGLOBULIN G
     Dosage: UNK
     Route: 065
  2. PRIVIGEN [Suspect]
     Active Substance: HUMAN IMMUNOGLOBULIN G
     Dosage: STRENGHT 20 UNKOWN UNITS
     Route: 065
  3. PRIVIGEN [Suspect]
     Active Substance: HUMAN IMMUNOGLOBULIN G
     Dosage: 45 GRAM, EVERY 21 DAYS
     Route: 042
  4. BENADRYL [Concomitant]
     Active Substance: DIPHENHYDRAMINE HYDROCHLORIDE
     Indication: Premedication
  5. SOLU-MEDROL [Concomitant]
     Active Substance: METHYLPREDNISOLONE SODIUM SUCCINATE
     Indication: Premedication
  6. TYLENOL [Concomitant]
     Active Substance: ACETAMINOPHEN
     Indication: Premedication

REACTIONS (18)
  - Oropharyngeal pain [Unknown]
  - Patient dissatisfaction with treatment [Unknown]
  - Sinusitis [Unknown]
  - Patient dissatisfaction with treatment [Unknown]
  - Ill-defined disorder [Unknown]
  - Patient dissatisfaction with treatment [Unknown]
  - Immunoglobulins decreased [Unknown]
  - No adverse event [Unknown]
  - Product leakage [Unknown]
  - Patient dissatisfaction with treatment [Unknown]
  - Palpitations [Not Recovered/Not Resolved]
  - Presyncope [Recovered/Resolved]
  - Hyperhidrosis [Not Recovered/Not Resolved]
  - Generalised oedema [Recovered/Resolved]
  - Seizure [Recovered/Resolved]
  - Palpitations [Recovered/Resolved]
  - No adverse event [Unknown]
  - Incorrect drug administration rate [Unknown]

NARRATIVE: CASE EVENT DATE: 20230323
